FAERS Safety Report 7959748-4 (Version None)
Quarter: 2011Q4

REPORT INFORMATION
  Report Type: 
  Country: None (occurrence: None)
  Receive Date: 20111206
  Receipt Date: 20111108
  Transmission Date: 20120403
  Serious: Yes (Hospitalization, Other)
  Sender: FDA-Public Use
  Company Number: JP-GLAXOSMITHKLINE-B0761913A

PATIENT
  Sex: Female

DRUGS (7)
  1. GASMOTIN [Concomitant]
     Dosage: 15MG PER DAY
     Route: 048
  2. MUCOSTA [Concomitant]
     Dosage: 300MG PER DAY
     Route: 048
  3. LAMICTAL [Suspect]
     Indication: BIPOLAR DISORDER
     Dosage: 25MG PER DAY
     Route: 048
     Dates: start: 20111025, end: 20111028
  4. TOLEDOMIN [Concomitant]
     Dosage: 50MG PER DAY
     Route: 048
  5. LAMICTAL [Suspect]
     Dosage: 50MG PER DAY
     Route: 048
     Dates: start: 20111029, end: 20111101
  6. LITHIUM CARBONATE [Concomitant]
     Dosage: 600MG PER DAY
     Route: 048
  7. LENDORMIN [Concomitant]
     Dosage: .25MG PER DAY
     Route: 048

REACTIONS (5)
  - ASPARTATE AMINOTRANSFERASE INCREASED [None]
  - ALANINE AMINOTRANSFERASE INCREASED [None]
  - PYREXIA [None]
  - DRUG ERUPTION [None]
  - C-REACTIVE PROTEIN INCREASED [None]
